FAERS Safety Report 21024078 (Version 1)
Quarter: 2022Q2

REPORT INFORMATION
  Report Type: Spontaneous
  Country: US (occurrence: US)
  Receive Date: 20220629
  Receipt Date: 20220629
  Transmission Date: 20220721
  Serious: Yes (Hospitalization)
  Sender: FDA-Public Use
  Company Number: US-GW PHARMA-202203USGW01472

PATIENT
  Sex: Male
  Weight: 76.644 kg

DRUGS (2)
  1. EPIDIOLEX [Suspect]
     Active Substance: CANNABIDIOL
     Indication: Lennox-Gastaut syndrome
     Dosage: 13.05 MG/KG/DAY, 500 MILLIGRAM, BID
     Route: 048
     Dates: start: 202101
  2. EPIDIOLEX [Suspect]
     Active Substance: CANNABIDIOL
     Indication: Status epilepticus
     Dosage: 5 MILLILITER
     Route: 048
     Dates: start: 202112

REACTIONS (2)
  - Hospitalisation [Unknown]
  - Emergency care [Unknown]
